FAERS Safety Report 8998099 (Version 1)
Quarter: 2013Q1

REPORT INFORMATION
  Report Type: Spontaneous
  Country: GB (occurrence: GB)
  Receive Date: 20130104
  Receipt Date: 20130104
  Transmission Date: 20140127
  Serious: Yes (Other)
  Sender: FDA-Public Use
  Company Number: GB-PFIZER INC-2013002283

PATIENT
  Age: 82 Year
  Sex: Male
  Weight: 57.5 kg

DRUGS (6)
  1. ATORVASTATIN [Suspect]
     Indication: MYOCARDIAL INFARCTION
     Dosage: 80 MG, UNK
     Route: 048
     Dates: start: 20121126, end: 20121219
  2. CLOPIDOGREL [Concomitant]
     Dosage: 75 MG, UNK
  3. ACETYLSALICYLIC ACID [Concomitant]
     Dosage: UNK
  4. LANSOPRAZOLE [Concomitant]
     Dosage: 30 MG, UNK
  5. RAMIPRIL [Concomitant]
     Dosage: 2.5 MG, UNK
  6. PREDNISOLONE [Concomitant]
     Dosage: 2.5 MG, UNK

REACTIONS (3)
  - Nausea [Recovering/Resolving]
  - Decreased appetite [Recovering/Resolving]
  - Depression [Recovering/Resolving]
